FAERS Safety Report 16541643 (Version 1)
Quarter: 2019Q3

REPORT INFORMATION
  Report Type: Spontaneous
  Country: US (occurrence: US)
  Receive Date: 20190708
  Receipt Date: 20190708
  Transmission Date: 20191004
  Serious: Yes (Hospitalization)
  Sender: FDA-Public Use
  Company Number: US-BRAINTREE LABORATORIES-190368

PATIENT
  Age: 70 Year
  Sex: Female
  Weight: 49.9 kg

DRUGS (1)
  1. SUPREP BOWEL PREP [Suspect]
     Active Substance: MAGNESIUM SULFATE\POTASSIUM SULFATE\SODIUM SULFATE
     Indication: COLONOSCOPY
     Dosage: {2X6OZ. BOTTLE
     Route: 048
     Dates: start: 20190620, end: 20190621

REACTIONS (3)
  - Diarrhoea [None]
  - Abdominal distension [None]
  - Stress cardiomyopathy [None]

NARRATIVE: CASE EVENT DATE: 20190621
